FAERS Safety Report 4467024-X (Version None)
Quarter: 2004Q4

REPORT INFORMATION
  Report Type: 
  Country: None (occurrence: None)
  Receive Date: 20041001
  Receipt Date: 20041001
  Transmission Date: 20050328
  Serious: Yes (Life-Threatening)
  Sender: FDA-Public Use
  Company Number: None

PATIENT
  Age: 55 Year
  Sex: Female
  Weight: 89.8122 kg

DRUGS (1)
  1. LIPITOR [Suspect]
     Dosage: 1  A DAY   ORAL
     Route: 048

REACTIONS (1)
  - UNEVALUABLE EVENT [None]
